FAERS Safety Report 15835583 (Version 2)
Quarter: 2019Q2

REPORT INFORMATION
  Report Type: Spontaneous
  Country: US (occurrence: US)
  Receive Date: 20190117
  Receipt Date: 20190503
  Transmission Date: 20190711
  Serious: No
  Sender: FDA-Public Use
  Company Number: US-BIOGEN-2019BI00679904

PATIENT
  Sex: Female

DRUGS (1)
  1. TECFIDERA [Suspect]
     Active Substance: DIMETHYL FUMARATE
     Indication: MULTIPLE SCLEROSIS
     Route: 050
     Dates: start: 2015, end: 20181120

REACTIONS (6)
  - Upper limb fracture [Unknown]
  - Fatigue [Unknown]
  - Balance disorder [Unknown]
  - Aphasia [Unknown]
  - Lymphocyte count decreased [Unknown]
  - Sensory overload [Unknown]
